FAERS Safety Report 21088099 (Version 2)
Quarter: 2022Q3

REPORT INFORMATION
  Report Type: Spontaneous
  Country: JP (occurrence: JP)
  Receive Date: 20220715
  Receipt Date: 20220901
  Transmission Date: 20221027
  Serious: Yes (Other)
  Sender: FDA-Public Use
  Company Number: JP-OTSUKA-2022_036211

PATIENT
  Age: 10 Month
  Sex: Male
  Weight: 8.8 kg

DRUGS (3)
  1. BUSULFEX [Suspect]
     Active Substance: BUSULFAN
     Indication: Bone marrow conditioning regimen
     Dosage: 1.2 MG/M2 FOR 4 DAYS
     Route: 065
  2. FLUDARABINE PHOSPHATE [Suspect]
     Active Substance: FLUDARABINE PHOSPHATE
     Indication: Bone marrow conditioning regimen
     Dosage: 30 MG/M2 FOR 4 DAYS
     Route: 065
  3. MELPHALAN [Suspect]
     Active Substance: MELPHALAN
     Indication: Bone marrow conditioning regimen
     Dosage: 90 MG/M2 FOR 2 DAYS
     Route: 065

REACTIONS (4)
  - Pulmonary hypertension [Unknown]
  - Nephrotic syndrome [Unknown]
  - Pneumonia cytomegaloviral [Recovering/Resolving]
  - Hypertension [Unknown]
